FAERS Safety Report 5108866-7 (Version None)
Quarter: 2006Q3

REPORT INFORMATION
  Report Type: 
  Country: None (occurrence: None)
  Receive Date: 20060915
  Receipt Date: 20060915
  Transmission Date: 20061208
  Serious: Yes (Hospitalization)
  Sender: FDA-Public Use
  Company Number: None

PATIENT
  Sex: Female
  Weight: 112.9457 kg

DRUGS (2)
  1. LUNESTA [Suspect]
     Indication: INSOMNIA
     Dates: start: 20060724, end: 20060814
  2. SEROQUEL [Suspect]
     Indication: SCHIZOAFFECTIVE DISORDER
     Dates: start: 20060724, end: 20060817

REACTIONS (6)
  - DRUG ERUPTION [None]
  - DRUG HYPERSENSITIVITY [None]
  - FUNGAL SKIN INFECTION [None]
  - IMPETIGO [None]
  - PYREXIA [None]
  - RASH PRURITIC [None]
